FAERS Safety Report 26149767 (Version 1)
Quarter: 2025Q4

REPORT INFORMATION
  Report Type: Spontaneous
  Country: US (occurrence: US)
  Receive Date: 20251212
  Receipt Date: 20251212
  Transmission Date: 20260118
  Serious: No
  Sender: ELI LILLY AND COMPANY
  Company Number: US-ELI_LILLY_AND_COMPANY-US202512004821

PATIENT
  Age: 55 Year
  Sex: Male

DRUGS (2)
  1. HUMULIN 70/30 [Suspect]
     Active Substance: INSULIN HUMAN
     Indication: Product used for unknown indication
     Dosage: 32 U, BID
     Route: 065
     Dates: start: 20251022, end: 20251110
  2. HUMULIN 70/30 [Suspect]
     Active Substance: INSULIN HUMAN
     Dosage: 32 U, BID
     Route: 065
     Dates: start: 20251022, end: 20251110

REACTIONS (2)
  - Accidental underdose [Unknown]
  - Blood glucose increased [Unknown]
